FAERS Safety Report 4853793-3 (Version None)
Quarter: 2005Q4

REPORT INFORMATION
  Report Type: 
  Country: None (occurrence: None)
  Receive Date: 20051212
  Receipt Date: 20051129
  Transmission Date: 20060501
  Serious: Yes (Other)
  Sender: FDA-Public Use
  Company Number: 2005162908

PATIENT
  Sex: Female
  Weight: 68.0396 kg

DRUGS (4)
  1. NORVASC [Suspect]
     Indication: HYPERTENSION
     Dosage: 10 MG (10 MG, DAILY), ORAL
     Route: 048
  2. GLUCOPHAGE [Concomitant]
  3. ACTOS [Concomitant]
  4. TRICOR [Concomitant]

REACTIONS (4)
  - CEREBRAL VENOUS THROMBOSIS [None]
  - CEREBROVASCULAR ACCIDENT [None]
  - SKIN DISCOLOURATION [None]
  - WEIGHT INCREASED [None]
